FAERS Safety Report 10048949 (Version 2)
Quarter: 2014Q2

REPORT INFORMATION
  Report Type: Spontaneous
  Country: US (occurrence: US)
  Receive Date: 20140331
  Receipt Date: 20140410
  Transmission Date: 20141212
  Serious: Yes (Other)
  Sender: FDA-Public Use
  Company Number: US-GILEAD-2014-0098330

PATIENT
  Sex: Female

DRUGS (2)
  1. LETAIRIS [Suspect]
     Indication: PRODUCT USED FOR UNKNOWN INDICATION
     Dosage: 5 MG, QD
     Dates: start: 2014, end: 2014
  2. ADCIRCA [Concomitant]

REACTIONS (3)
  - Pneumonia [Unknown]
  - Unevaluable event [Unknown]
  - Oxygen saturation decreased [Unknown]
